FAERS Safety Report 6271383-5 (Version None)
Quarter: 2009Q3

REPORT INFORMATION
  Report Type: 
  Country: None (occurrence: None)
  Receive Date: 20090717
  Receipt Date: 20090707
  Transmission Date: 20100115
  Serious: Yes (Death)
  Sender: FDA-Public Use
  Company Number: AT-ROCHE-642237

PATIENT
  Sex: Male
  Weight: 103 kg

DRUGS (2)
  1. XELODA [Suspect]
     Route: 048
     Dates: start: 20081117, end: 20081130
  2. OXALIPLATIN [Concomitant]
     Route: 042
     Dates: start: 20081117

REACTIONS (5)
  - ACUTE PRERENAL FAILURE [None]
  - DIARRHOEA [None]
  - MUCOSAL INFLAMMATION [None]
  - MULTI-ORGAN FAILURE [None]
  - SEPSIS [None]
